FAERS Safety Report 4641025-0 (Version None)
Quarter: 2005Q2

REPORT INFORMATION
  Report Type: 
  Country: None (occurrence: None)
  Receive Date: 20050419
  Receipt Date: 20050419
  Transmission Date: 20051028
  Serious: Yes (Other)
  Sender: FDA-Public Use
  Company Number: None

PATIENT
  Age: 58 Year
  Sex: Male
  Weight: 99.7913 kg

DRUGS (1)
  1. FENTANYL [Suspect]
     Indication: BACK PAIN
     Dosage: 75 MG TOPICAL
     Route: 061
     Dates: start: 20050315, end: 20050415

REACTIONS (2)
  - INADEQUATE ANALGESIA [None]
  - RASH PRURITIC [None]
